FAERS Safety Report 9739064 (Version 1)
Quarter: 2013Q4

REPORT INFORMATION
  Report Type: Spontaneous
  Country: US (occurrence: US)
  Receive Date: 20131209
  Receipt Date: 20131209
  Transmission Date: 20140711
  Serious: Yes (Hospitalization)
  Sender: FDA-Public Use
  Company Number: US-BAYER-2013-148699

PATIENT
  Age: 28 Year
  Sex: Female
  Weight: 60 kg

DRUGS (2)
  1. YAZ [Suspect]
     Dosage: UNK
  2. SKELAXIN [Concomitant]
     Dosage: UNK UNK, PRN
     Dates: start: 20090813

REACTIONS (1)
  - Deep vein thrombosis [None]
